FAERS Safety Report 6437523-X (Version None)
Quarter: 2009Q4

REPORT INFORMATION
  Report Type: 
  Country: None (occurrence: None)
  Receive Date: 20091112
  Receipt Date: 20091103
  Transmission Date: 20100525
  Serious: Yes (Other)
  Sender: FDA-Public Use
  Company Number: AU-ASTRAZENECA-2009SE22106

PATIENT
  Sex: Male
  Weight: 151 kg

DRUGS (10)
  1. CRESTOR [Suspect]
     Indication: DYSLIPIDAEMIA
     Route: 048
     Dates: start: 20090210
  2. ASPIRIN [Concomitant]
     Route: 048
  3. ATENOLOL [Concomitant]
     Indication: BLOOD PRESSURE
     Route: 048
  4. LIPIDIL [Concomitant]
     Indication: DYSLIPIDAEMIA
     Route: 048
  5. METFORMIN HCL [Concomitant]
     Indication: TYPE 2 DIABETES MELLITUS
     Route: 048
  6. MONODUR [Concomitant]
     Indication: ANGINA PECTORIS
     Route: 048
  7. NOVOMIX 30 [Concomitant]
     Dosage: 34 UNITS AT NIGHT
     Route: 058
  8. PROGOUT [Concomitant]
  9. TRITACE [Concomitant]
     Route: 048
  10. TALAM [Concomitant]
     Route: 048

REACTIONS (1)
  - BLOOD TRIGLYCERIDES INCREASED [None]
